FAERS Safety Report 8707978 (Version 3)
Quarter: 2013Q3

REPORT INFORMATION
  Report Type: Spontaneous
  Country: US (occurrence: US)
  Receive Date: 20120806
  Receipt Date: 20130830
  Transmission Date: 20140515
  Serious: Yes (Hospitalization)
  Sender: FDA-Public Use
  Company Number: US-GENZYME-POMP-1002293

PATIENT
  Age: 16 Year
  Sex: Female
  Weight: 50.5 kg

DRUGS (5)
  1. LUMIZYME [Suspect]
     Indication: GLYCOGEN STORAGE DISEASE TYPE II
     Dosage: 1000 MG, Q2W
     Route: 042
     Dates: start: 20101231
  2. MYOZYME [Concomitant]
     Indication: FABRY^S DISEASE
     Dosage: UNK
     Route: 042
     Dates: start: 20090505
  3. DIPHENHYDRAMINE [Concomitant]
     Indication: PREMEDICATION
     Dosage: 25 MG, 1 HOUR PRIOR TO INFUSION
     Route: 048
     Dates: start: 20090505
  4. IBUPROFEN [Concomitant]
     Indication: PREMEDICATION
     Dosage: 400 MG, 1 HOUR BEFORE INFUSION
     Dates: start: 20090505
  5. MULTIVITAMIN [Concomitant]
     Indication: PRODUCT USED FOR UNKNOWN INDICATION
     Dosage: 1 UNK, QD
     Route: 048

REACTIONS (6)
  - Serum sickness [Unknown]
  - Pain [Recovered/Resolved]
  - Abdominal pain [Recovered/Resolved]
  - Paraesthesia [Unknown]
  - Dizziness [Unknown]
  - Nausea [Recovered/Resolved]
